FAERS Safety Report 14790438 (Version 1)
Quarter: 2018Q2

REPORT INFORMATION
  Report Type: Not Available
  Country: FR (occurrence: FR)
  Receive Date: 20180423
  Receipt Date: 20180423
  Transmission Date: 20180711
  Serious: Yes (Hospitalization, Other)
  Sender: FDA-Public Use
  Company Number: FR-SYNTHON BV-NL01PV18_46857

PATIENT
  Age: 74 Year
  Sex: Male
  Weight: 82 kg

DRUGS (13)
  1. PRIVIGEN [Suspect]
     Active Substance: HUMAN IMMUNOGLOBULIN G
     Indication: PERIPHERAL SENSORY NEUROPATHY
     Dosage: UNK
     Route: 042
     Dates: start: 20180212, end: 20180214
  2. PRIVIGEN [Suspect]
     Active Substance: HUMAN IMMUNOGLOBULIN G
     Dosage: 200 ML (20 G), UNK
     Route: 041
     Dates: start: 20180219, end: 20180219
  3. PRIVIGEN [Suspect]
     Active Substance: HUMAN IMMUNOGLOBULIN G
     Dosage: 100 MG/ML, UNK, FOR 5 DAYS EVERY 12 WEEKS
     Route: 042
     Dates: end: 20180219
  4. SALINE                             /00075401/ [Concomitant]
     Active Substance: SODIUM CHLORIDE
     Indication: PROPHYLAXIS AGAINST DEHYDRATION
     Route: 065
  5. PREVISCAN                          /00261401/ [Suspect]
     Active Substance: PENTOXIFYLLINE
     Indication: ATRIAL FIBRILLATION
     Dosage: 20 MG, UNK
     Route: 048
  6. BISOPROLOL FUMARATE. [Suspect]
     Active Substance: BISOPROLOL FUMARATE
     Indication: ATRIAL FIBRILLATION
     Dosage: 5 MG, UNK
     Route: 048
  7. BISOPROLOL FUMARATE. [Suspect]
     Active Substance: BISOPROLOL FUMARATE
     Indication: HYPERTENSION
  8. TRIATEC                            /00116401/ [Suspect]
     Active Substance: ACETAMINOPHEN\CODEINE PHOSPHATE
     Indication: HYPERTENSION
     Dosage: 5 MG, UNK
     Route: 048
  9. PRIVIGEN [Suspect]
     Active Substance: HUMAN IMMUNOGLOBULIN G
     Dosage: 100 ML (10 G), UNK
     Route: 041
     Dates: start: 20180219
  10. PRIVIGEN [Suspect]
     Active Substance: HUMAN IMMUNOGLOBULIN G
     Dosage: 12 DF, UNK
     Route: 041
     Dates: start: 20180219, end: 20180219
  11. FLECAINE [Suspect]
     Active Substance: FLECAINIDE
     Indication: ATRIAL FIBRILLATION
     Dosage: 50 MG, UNK
     Route: 048
  12. AVODART [Suspect]
     Active Substance: DUTASTERIDE
     Indication: BENIGN PROSTATIC HYPERPLASIA
     Dosage: 20 MG, UNK
     Route: 048
  13. TAMSULOSIN [Suspect]
     Active Substance: TAMSULOSIN
     Indication: BENIGN PROSTATIC HYPERPLASIA
     Dosage: 0.4 MG, UNK
     Route: 048

REACTIONS (8)
  - Leukopenia [Unknown]
  - Neutropenia [Unknown]
  - Procalcitonin increased [Unknown]
  - Staphylococcus test positive [Unknown]
  - Pyrexia [Unknown]
  - Blood pressure systolic decreased [Unknown]
  - Suspected transmission of an infectious agent via product [Unknown]
  - Chills [Unknown]

NARRATIVE: CASE EVENT DATE: 20180219
